FAERS Safety Report 4866946-5 (Version None)
Quarter: 2005Q4

REPORT INFORMATION
  Report Type: 
  Country: None (occurrence: None)
  Receive Date: 20051227
  Receipt Date: 20051219
  Transmission Date: 20060501
  Serious: Yes (Other)
  Sender: FDA-Public Use
  Company Number: AU-MERCK-0512AUS00378

PATIENT
  Age: 71 Year
  Sex: Female

DRUGS (10)
  1. LEVOTHYROXINE SODIUM [Concomitant]
     Route: 065
  2. WARFARIN [Concomitant]
     Route: 065
  3. FLECAINIDE ACETATE [Concomitant]
     Route: 065
  4. CANDESARTAN CILEXETIL [Concomitant]
     Route: 065
  5. ASPIRIN [Concomitant]
     Route: 065
  6. VITAMIN B (UNSPECIFIED) [Concomitant]
     Route: 065
  7. GLUCOSAMINE [Concomitant]
     Route: 065
  8. OMEGA-3 MARINE TRIGLYCERIDES [Concomitant]
     Route: 065
  9. NUTRITIONAL SUPPLEMENTS [Concomitant]
     Route: 065
  10. ZETIA [Suspect]
     Indication: BLOOD CHOLESTEROL INCREASED
     Route: 048
     Dates: start: 20050801, end: 20051215

REACTIONS (3)
  - DEAFNESS [None]
  - HEARING IMPAIRED [None]
  - TINNITUS [None]
